FAERS Safety Report 19707570 (Version 1)
Quarter: 2021Q3

REPORT INFORMATION
  Report Type: Spontaneous
  Country: DE (occurrence: DE)
  Receive Date: 20210817
  Receipt Date: 20210817
  Transmission Date: 20211014
  Serious: Yes (Death, Hospitalization, Other)
  Sender: FDA-Public Use
  Company Number: DE-TEVA-2021-DE-1941775

PATIENT
  Age: 76 Year
  Sex: Female

DRUGS (14)
  1. ACETYLSALICYLSAURE [Suspect]
     Active Substance: ASPIRIN
     Dosage: 100 MILLIGRAM DAILY; 100 MG, 1?0?0?0
     Route: 065
  2. METAMIZOL [Concomitant]
     Active Substance: METAMIZOLE SODIUM
     Dosage: REQUIREMENT
  3. GRANISETRON [Concomitant]
     Active Substance: GRANISETRON
     Dosage: 2 MG, AS NEEDED
  4. PREDNISOLON [Concomitant]
     Active Substance: PREDNISOLONE
     Dosage: 5 MILLIGRAM DAILY;  1?0?0?0
  5. LEVOTHYROXINE?NATRIUM [Concomitant]
     Dosage: 75 MICROGRAM DAILY; 1?0?0?0
  6. CARBOPLATIN. [Suspect]
     Active Substance: CARBOPLATIN
     Dosage: SCHEME
     Route: 065
  7. FLUCONAZOL [Concomitant]
     Active Substance: FLUCONAZOLE
     Dosage: 20 MG, AS NEEDED
  8. CANDESARTAN. [Concomitant]
     Active Substance: CANDESARTAN
     Dosage: 8 MILLIGRAM DAILY; 1?0?0?0
  9. ATORVASTATIN [Concomitant]
     Active Substance: ATORVASTATIN
     Dosage: 40 MILLIGRAM DAILY; 0?0?1?0
  10. CIPROFLOXACIN. [Concomitant]
     Active Substance: CIPROFLOXACIN
     Dosage: 250 MG, AS NEEDED
  11. DOXORUBICIN [Suspect]
     Active Substance: DOXORUBICIN
     Dosage: SCHEME
     Route: 065
  12. DEXAMETHASON [Suspect]
     Active Substance: DEXAMETHASONE
     Dosage: 4 MG, AS NEEDED
     Route: 065
  13. ACICLOVIR [Concomitant]
     Active Substance: ACYCLOVIR
     Dosage: REQUIREMENT
  14. METOCLOPRAMID [Concomitant]
     Active Substance: METOCLOPRAMIDE
     Dosage: AS NEEDED

REACTIONS (6)
  - General physical health deterioration [Unknown]
  - Nausea [Unknown]
  - Abdominal distension [Unknown]
  - Tachypnoea [Unknown]
  - Haematochezia [Unknown]
  - Vomiting [Unknown]
